FAERS Safety Report 5532770-3 (Version None)
Quarter: 2007Q4

REPORT INFORMATION
  Report Type: 
  Country: None (occurrence: None)
  Receive Date: 20071128
  Receipt Date: 20071119
  Transmission Date: 20080405
  Serious: Yes (Hospitalization)
  Sender: FDA-Public Use
  Company Number: 2007SP003890

PATIENT
  Age: 54 Year
  Sex: Male
  Weight: 145.151 kg

DRUGS (4)
  1. LUNESTA [Suspect]
     Indication: INSOMNIA
     Dosage: 3 MG; PRN; ORAL
     Route: 048
     Dates: start: 20071001, end: 20071024
  2. LUNESTA [Suspect]
     Indication: INSOMNIA
     Dosage: 3 MG; PRN; ORAL
     Route: 048
     Dates: start: 20071110, end: 20071124
  3. LANTUS [Concomitant]
  4. INSULIN ASPART [Concomitant]

REACTIONS (7)
  - DIALYSIS [None]
  - DRUG INEFFECTIVE [None]
  - GAIT DISTURBANCE [None]
  - LOSS OF CONSCIOUSNESS [None]
  - PAIN IN EXTREMITY [None]
  - RENAL FAILURE ACUTE [None]
  - WOUND [None]
